FAERS Safety Report 9930121 (Version 2)
Quarter: 2014Q2

REPORT INFORMATION
  Report Type: Spontaneous
  Country: US (occurrence: US)
  Receive Date: 20140227
  Receipt Date: 20140403
  Transmission Date: 20141212
  Serious: No
  Sender: FDA-Public Use
  Company Number: US-TEVA-465779USA

PATIENT
  Age: 20 Year
  Sex: Female

DRUGS (6)
  1. CLARAVIS [Suspect]
     Route: 048
     Dates: start: 20131119, end: 201403
  2. IUD NOS [Suspect]
  3. ADDERALL [Concomitant]
  4. AMBIEN [Concomitant]
  5. ZYRTEC [Concomitant]
  6. ALBUTEROL [Concomitant]
     Route: 055

REACTIONS (2)
  - Abdominal pain [Unknown]
  - Medical device complication [Recovered/Resolved]
